FAERS Safety Report 7352602-0 (Version None)
Quarter: 2011Q1

REPORT INFORMATION
  Report Type: 
  Country: None (occurrence: None)
  Receive Date: 20110315
  Receipt Date: 20110308
  Transmission Date: 20110831
  Serious: Yes (Death)
  Sender: FDA-Public Use
  Company Number: DE-GENZYME-FLUD-1000871

PATIENT

DRUGS (8)
  1. COTRIM [Concomitant]
     Indication: ANTIFUNGAL PROPHYLAXIS
     Dosage: 960 MG, 2X/W
     Route: 065
  2. CAMPATH [Suspect]
     Indication: STEM CELL TRANSPLANT
     Dosage: 5MG AT DAY-8
     Route: 065
  3. CIPROFLOXACIN HCL [Concomitant]
     Indication: PROPHYLAXIS
     Dosage: 500 MG, QD
  4. CAMPATH [Suspect]
     Dosage: 20 MG, DAY -6 TO -4
     Route: 065
  5. BUSULFAN [Suspect]
     Indication: STEM CELL TRANSPLANT
     Dosage: 1 MG, QID ON DAYS -3 AND -2
     Route: 048
  6. CYCLOSPORINE [Concomitant]
     Indication: PRODUCT USED FOR UNKNOWN INDICATION
     Dosage: STARTED PM DAY -1
     Route: 048
  7. FLUDARA [Suspect]
     Indication: STEM CELL TRANSPLANT
     Dosage: 30 MG/M2, QD ON DAYS -8 TO -4
     Route: 042
  8. CAMPATH [Suspect]
     Dosage: 10 MG AT DAY -7
     Route: 065

REACTIONS (1)
  - INFECTION [None]
